FAERS Safety Report 15878025 (Version 2)
Quarter: 2019Q1

REPORT INFORMATION
  Report Type: Spontaneous
  Country: US (occurrence: US)
  Receive Date: 20190128
  Receipt Date: 20190128
  Transmission Date: 20190417
  Serious: No
  Sender: FDA-Public Use
  Company Number: US-UNICHEM PHARMACEUTICALS (USA) INC-UCM201807-000187

PATIENT

DRUGS (1)
  1. MELOXICAM. [Suspect]
     Active Substance: MELOXICAM

REACTIONS (1)
  - Drug ineffective [Unknown]
